FAERS Safety Report 20924267 (Version 1)
Quarter: 2022Q2

REPORT INFORMATION
  Report Type: Spontaneous
  Country: FR (occurrence: FR)
  Receive Date: 20220607
  Receipt Date: 20220607
  Transmission Date: 20220721
  Serious: Yes (Other)
  Sender: FDA-Public Use
  Company Number: FR-009507513-2206FRA000382

PATIENT
  Age: 49 Year
  Sex: Female
  Weight: 60 kg

DRUGS (1)
  1. KEYTRUDA [Suspect]
     Active Substance: PEMBROLIZUMAB
     Dosage: 25 MG/ML CONCENTRATE; 200 MILLIGRAM POSOLOGY
     Route: 042
     Dates: start: 20220518

REACTIONS (1)
  - Severe cutaneous adverse reaction [Unknown]

NARRATIVE: CASE EVENT DATE: 20220527
